FAERS Safety Report 10218371 (Version 2)
Quarter: 2014Q3

REPORT INFORMATION
  Report Type: Spontaneous
  Country: IT (occurrence: IT)
  Receive Date: 20140605
  Receipt Date: 20140725
  Transmission Date: 20150326
  Serious: Yes (Other)
  Sender: FDA-Public Use
  Company Number: IT-BAYER-2014-078720

PATIENT
  Age: 80 Year
  Sex: Male

DRUGS (4)
  1. CARDIOASPIRIN [Suspect]
     Active Substance: ASPIRIN
     Indication: HYPERTENSION
     Dosage: DAILY DOSE 100 MG
     Route: 048
     Dates: start: 20100907, end: 20140511
  2. CONGESCOR [Concomitant]
     Active Substance: BISOPROLOL
     Dosage: UNK
  3. MONOKET [Concomitant]
     Active Substance: ISOSORBIDE MONONITRATE
     Dosage: UNK
  4. QUARK [Concomitant]
     Active Substance: RAMIPRIL
     Dosage: UNK

REACTIONS (4)
  - Muscle strain [Not Recovered/Not Resolved]
  - Spontaneous haematoma [Not Recovered/Not Resolved]
  - Pain in extremity [Not Recovered/Not Resolved]
  - Ecchymosis [Not Recovered/Not Resolved]

NARRATIVE: CASE EVENT DATE: 20140507
